FAERS Safety Report 8395800-X (Version None)
Quarter: 2012Q2

REPORT INFORMATION
  Report Type: 
  Country: None (occurrence: None)
  Receive Date: 20120530
  Receipt Date: 20120525
  Transmission Date: 20120825
  Serious: Yes (Hospitalization, Other)
  Sender: FDA-Public Use
  Company Number: BR-ROCHE-743999

PATIENT
  Sex: Female
  Weight: 92 kg

DRUGS (12)
  1. MABTHERA [Suspect]
     Dosage: THIRD DOSE FORM: INFUSION
     Route: 042
  2. MABTHERA [Suspect]
     Dosage: SECOND DOSE FORM: INFUSION
     Route: 042
  3. MABTHERA [Suspect]
     Dosage: FOURTH DOSE FORM: INFUSION
     Route: 042
  4. CALCIUM [Concomitant]
  5. METFORMIN HCL [Concomitant]
  6. BENERVA [Concomitant]
  7. LOSARTAN POTASSIUM [Concomitant]
  8. LOSARTAN POTASSIUM [Concomitant]
  9. SERTRALINE HYDROCHLORIDE [Concomitant]
  10. ASPIRIN [Concomitant]
  11. MABTHERA [Suspect]
     Indication: RHEUMATOID ARTHRITIS
     Dosage: OTHER INDICATION: VASCULITIS, FORM: INFUSION
     Route: 042
     Dates: start: 20100415, end: 20101101
  12. CLONAZEPAM [Concomitant]

REACTIONS (15)
  - CARDIAC DISORDER [None]
  - BODY HEIGHT DECREASED [None]
  - LIPOMA [None]
  - URINARY TRACT INFECTION [None]
  - RENAL PAIN [None]
  - VASCULITIS [None]
  - WEIGHT DECREASED [None]
  - PAIN IN EXTREMITY [None]
  - DIABETES MELLITUS [None]
  - DIZZINESS [None]
  - IMPAIRED HEALING [None]
  - RENAL CYST [None]
  - HEADACHE [None]
  - VISUAL IMPAIRMENT [None]
  - WEIGHT INCREASED [None]
